FAERS Safety Report 24787554 (Version 1)
Quarter: 2024Q4

REPORT INFORMATION
  Report Type: Spontaneous
  Country: CA (occurrence: CA)
  Receive Date: 20241230
  Receipt Date: 20241230
  Transmission Date: 20250115
  Serious: Yes (Other)
  Sender: BRISTOL-MYERS SQUIBB COMPANY
  Company Number: CA-BRISTOL-MYERS SQUIBB COMPANY-2024-200196

PATIENT
  Age: 64 Year
  Sex: Male

DRUGS (2)
  1. APIXABAN [Suspect]
     Active Substance: APIXABAN
     Indication: Atrial fibrillation
  2. SIMPONI [Concomitant]
     Active Substance: GOLIMUMAB
     Indication: Ankylosing spondylitis
     Dosage: SOLUTION SUBCUTANEOUS
     Route: 058

REACTIONS (2)
  - Acute macular neuroretinopathy [Not Recovered/Not Resolved]
  - Superior sagittal sinus thrombosis [Not Recovered/Not Resolved]
